FAERS Safety Report 23757238 (Version 3)
Quarter: 2024Q2

REPORT INFORMATION
  Report Type: Spontaneous
  Country: ES (occurrence: ES)
  Receive Date: 20240418
  Receipt Date: 20240514
  Transmission Date: 20240715
  Serious: Yes (Other)
  Sender: FDA-Public Use
  Company Number: ES-LUNDBECK-DKLU3076592

PATIENT
  Sex: Female
  Weight: 61 kg

DRUGS (4)
  1. BRINTELLIX [Suspect]
     Active Substance: VORTIOXETINE HYDROBROMIDE
     Indication: Major depression
     Dosage: 5 MILLIGRAM, QD
     Route: 065
     Dates: start: 202205
  2. BRINTELLIX [Suspect]
     Active Substance: VORTIOXETINE HYDROBROMIDE
     Dosage: 2.5 MILLIGRAM
     Route: 065
     Dates: end: 20240215
  3. MAGNESIUM [Concomitant]
     Active Substance: MAGNESIUM
     Indication: Bone pain
     Dosage: UNK
     Route: 065
  4. HERBALS\WITHANIA SOMNIFERA ROOT [Concomitant]
     Active Substance: HERBALS\WITHANIA SOMNIFERA ROOT
     Indication: Nervous system disorder
     Dosage: UNK

REACTIONS (50)
  - Hallucination, auditory [Recovering/Resolving]
  - Depressed level of consciousness [Recovering/Resolving]
  - Seizure [Recovering/Resolving]
  - Brain fog [Recovering/Resolving]
  - Asthenia [Recovering/Resolving]
  - Injury [Recovering/Resolving]
  - Paranoia [Recovering/Resolving]
  - Stress [Recovering/Resolving]
  - Feeling abnormal [Recovering/Resolving]
  - Menopausal symptoms [Recovering/Resolving]
  - Muscle spasms [Recovered/Resolved]
  - Swelling [Recovered/Resolved]
  - Pain [Recovering/Resolving]
  - Dyspnoea [Recovering/Resolving]
  - Neck pain [Recovering/Resolving]
  - Tachycardia [Recovered/Resolved]
  - Fluid retention [Recovering/Resolving]
  - Arthralgia [Recovering/Resolving]
  - Fatigue [Recovering/Resolving]
  - Confusional state [Recovering/Resolving]
  - Amnesia [Recovering/Resolving]
  - Tremor [Recovering/Resolving]
  - Photosensitivity reaction [Recovering/Resolving]
  - Hyperacusis [Recovering/Resolving]
  - Thinking abnormal [Recovering/Resolving]
  - Anxiety [Recovering/Resolving]
  - Abdominal pain [Recovering/Resolving]
  - Palpitations [Recovering/Resolving]
  - Feeling cold [Recovering/Resolving]
  - Dissociation [Recovering/Resolving]
  - Blood pressure increased [Recovering/Resolving]
  - Hypoaesthesia [Recovering/Resolving]
  - Dysarthria [Recovering/Resolving]
  - Gait inability [Recovering/Resolving]
  - Electric shock sensation [Recovering/Resolving]
  - Bone pain [Recovering/Resolving]
  - Aphasia [Recovering/Resolving]
  - Loss of personal independence in daily activities [Recovering/Resolving]
  - Nightmare [Recovering/Resolving]
  - Crying [Recovering/Resolving]
  - Mood swings [Recovering/Resolving]
  - Drug effect less than expected [Recovering/Resolving]
  - Condition aggravated [Recovering/Resolving]
  - Wrong technique in product usage process [Unknown]
  - Underdose [Unknown]
  - Therapy cessation [Unknown]
  - Nausea [Recovered/Resolved]
  - Headache [Recovering/Resolving]
  - Dizziness [Recovered/Resolved]
  - Mania [Recovering/Resolving]

NARRATIVE: CASE EVENT DATE: 20220101
